FAERS Safety Report 7617910-4 (Version None)
Quarter: 2011Q3

REPORT INFORMATION
  Report Type: 
  Country: None (occurrence: None)
  Receive Date: 20110718
  Receipt Date: 20110704
  Transmission Date: 20111222
  Serious: Yes (Hospitalization)
  Sender: FDA-Public Use
  Company Number: PHHY2011MX60267

PATIENT
  Sex: Female

DRUGS (1)
  1. EXFORGE HCT [Suspect]
     Indication: HYPERTENSION
     Dosage: (160 MG VALS, 5 MG AMLO AND 12.5 MG HYDR) DAILY
     Route: 048
     Dates: start: 20090101

REACTIONS (5)
  - WOUND COMPLICATION [None]
  - CHOLELITHIASIS [None]
  - DYSSTASIA [None]
  - ABDOMINAL DISCOMFORT [None]
  - ABDOMINAL PAIN [None]
